FAERS Safety Report 13159395 (Version 1)
Quarter: 2017Q1

REPORT INFORMATION
  Report Type: Spontaneous
  Country: JP (occurrence: JP)
  Receive Date: 20170127
  Receipt Date: 20170127
  Transmission Date: 20170428
  Serious: Yes (Death, Other)
  Sender: FDA-Public Use
  Company Number: JP-PFIZER INC-2016560989

PATIENT
  Age: 68 Year
  Sex: Female
  Weight: 41.5 kg

DRUGS (9)
  1. KAYEXALATE [Concomitant]
     Active Substance: SODIUM POLYSTYRENE SULFONATE
     Indication: BLOOD POTASSIUM INCREASED
     Dosage: 3.27 G, 3X/DAY
     Route: 048
     Dates: end: 20160920
  2. DOPS [Concomitant]
     Active Substance: DROXIDOPA
     Indication: PROCEDURAL HYPOTENSION
     Dosage: 100 MG, AS NEEDED
     Route: 048
  3. LIVALO [Concomitant]
     Active Substance: PITAVASTATIN CALCIUM
     Indication: BLOOD CHOLESTEROL INCREASED
     Dosage: 1 MG, 1X/DAY
     Route: 048
     Dates: end: 20160920
  4. RENAGEL [Concomitant]
     Active Substance: SEVELAMER HYDROCHLORIDE
     Indication: BLOOD PHOSPHORUS ABNORMAL
     Dosage: 2 G, 3X/DAY
     Route: 048
     Dates: end: 20160920
  5. INDERAL [Concomitant]
     Active Substance: PROPRANOLOL HYDROCHLORIDE
     Indication: HYPERTENSION
     Dosage: 10 MG, 1X/DAY ( BEFORE BEDTIME)
     Route: 048
     Dates: end: 20160919
  6. FOSRENOL [Concomitant]
     Active Substance: LANTHANUM CARBONATE
     Indication: BLOOD PHOSPHORUS ABNORMAL
     Dosage: 750 MG, 3X/DAY
     Route: 048
     Dates: end: 20160920
  7. REMITCH [Concomitant]
     Active Substance: NALFURAFINE HYDROCHLORIDE
     Indication: PRURITUS
     Dosage: 5.0 UG, 1X/DAY
     Route: 048
     Dates: end: 20160920
  8. REGPARA [Concomitant]
     Active Substance: CINACALCET HYDROCHLORIDE
     Indication: HYPERPARATHYROIDISM SECONDARY
     Dosage: 75 MG, 1X/DAY
     Route: 048
     Dates: end: 20160920
  9. SUTENT [Suspect]
     Active Substance: SUNITINIB MALATE
     Indication: METASTATIC RENAL CELL CARCINOMA
     Dosage: 37.5 MG, 1X/DAY
     Route: 048
     Dates: start: 20160916, end: 20160920

REACTIONS (2)
  - Blood pressure increased [Fatal]
  - Subarachnoid haemorrhage [Fatal]

NARRATIVE: CASE EVENT DATE: 20160920
